FAERS Safety Report 7277795-5 (Version None)
Quarter: 2011Q1

REPORT INFORMATION
  Report Type: 
  Country: None (occurrence: None)
  Receive Date: 20110207
  Receipt Date: 20110126
  Transmission Date: 20110831
  Serious: Yes (Other)
  Sender: FDA-Public Use
  Company Number: ES-SANOFI-AVENTIS-2011SA005700

PATIENT

DRUGS (1)
  1. MULTAQ [Suspect]
     Route: 048

REACTIONS (3)
  - GLOMERULAR FILTRATION RATE ABNORMAL [None]
  - BLOOD CREATININE INCREASED [None]
  - RENAL FAILURE [None]
